FAERS Safety Report 10478959 (Version 2)
Quarter: 2014Q4

REPORT INFORMATION
  Report Type: Report from Study
  Country: PL (occurrence: PL)
  Receive Date: 20140926
  Receipt Date: 20141007
  Transmission Date: 20150528
  Serious: Yes (Hospitalization)
  Sender: FDA-Public Use
  Company Number: PL-PFIZER INC-2014255699

PATIENT
  Age: 37 Year
  Sex: Male
  Weight: 109.5 kg

DRUGS (4)
  1. TOFACITINIB CITRATE [Suspect]
     Active Substance: TOFACITINIB CITRATE
     Indication: PSORIASIS
     Dosage: 10 MG, 2X/DAY
     Route: 048
     Dates: start: 20120810
  2. PERSPIBLOCK [Concomitant]
     Indication: HYPERHIDROSIS
     Dosage: UNK
     Route: 048
     Dates: start: 20130510
  3. IBUPROFEN. [Concomitant]
     Active Substance: IBUPROFEN
     Indication: INFLAMMATION
     Dosage: 200 MG, AS NEEDED
     Route: 048
     Dates: start: 201405
  4. NO-SPA [Concomitant]
     Active Substance: DROTAVERINE HYDROCHLORIDE
     Indication: INFLAMMATION
     Dosage: UNK
     Route: 048
     Dates: start: 201405

REACTIONS (1)
  - Salivary gland disorder [Unknown]

NARRATIVE: CASE EVENT DATE: 20140914
